FAERS Safety Report 5399224-9 (Version None)
Quarter: 2007Q3

REPORT INFORMATION
  Report Type: 
  Country: None (occurrence: None)
  Receive Date: 20070727
  Receipt Date: 20070719
  Transmission Date: 20080115
  Serious: Yes (Life-Threatening, Hospitalization)
  Sender: FDA-Public Use
  Company Number: DE-AMGEN-US235337

PATIENT
  Sex: Female
  Weight: 52 kg

DRUGS (2)
  1. ENBREL [Suspect]
     Indication: PSORIATIC ARTHROPATHY
     Route: 058
     Dates: start: 20070220
  2. ENBREL [Suspect]
     Indication: SPONDYLITIS

REACTIONS (1)
  - ACUTE CORONARY SYNDROME [None]
